FAERS Safety Report 19644326 (Version 1)
Quarter: 2021Q3

REPORT INFORMATION
  Report Type: Spontaneous
  Country: GB (occurrence: GB)
  Receive Date: 20210801
  Receipt Date: 20210801
  Transmission Date: 20211014
  Serious: Yes (Other)
  Sender: FDA-Public Use
  Company Number: GB-ADVANZ PHARMA-202107005320

PATIENT

DRUGS (11)
  1. ACCORD?UK AMITRIPTYLINE [Concomitant]
     Dosage: 25 MG
  2. RIVOPHARM UK GABAPENTIN [Concomitant]
     Dosage: 300 MG
  3. DERMOVATE [Concomitant]
     Active Substance: CLOBETASOL
     Dosage: UNK
  4. PARACETAMOL [Concomitant]
     Active Substance: ACETAMINOPHEN
  5. RIVOPHARM UK GABAPENTIN [Concomitant]
     Dosage: 100 MG
  6. NEURONTIN [Concomitant]
     Active Substance: GABAPENTIN
     Dosage: 600 MG
  7. DIPROBASE [Concomitant]
     Active Substance: CHLOROCRESOL
     Dosage: UNK
  8. PREDNISOLONE. [Suspect]
     Active Substance: PREDNISOLONE
     Indication: LICHEN PLANUS
     Dosage: 10 MG, QD (AS A SINGLE DOSE IN THE MORNING)
     Route: 048
     Dates: start: 20210330
  9. ACCORD?UK AMITRIPTYLINE [Concomitant]
     Dosage: 50 MG
  10. GENERICS UK ESOMEPRAZOLE GASTRO?RESISTANT [Concomitant]
     Active Substance: ESOMEPRAZOLE
     Dosage: 20 MG
  11. TILLOMED LABS DULOXETINE GASTRO?RESISTANT [Concomitant]
     Dosage: 60 MG, BID

REACTIONS (9)
  - Headache [Not Recovered/Not Resolved]
  - Thirst [Unknown]
  - Abdominal distension [Not Recovered/Not Resolved]
  - Nausea [Not Recovered/Not Resolved]
  - Dysphagia [Unknown]
  - Constipation [Not Recovered/Not Resolved]
  - Steroid diabetes [Not Recovered/Not Resolved]
  - Hot flush [Not Recovered/Not Resolved]
  - Abdominal discomfort [Not Recovered/Not Resolved]

NARRATIVE: CASE EVENT DATE: 202104
